FAERS Safety Report 9136447 (Version 1)
Quarter: 2013Q1

REPORT INFORMATION
  Report Type: Spontaneous
  Country: JP (occurrence: JP)
  Receive Date: 20130304
  Receipt Date: 20130304
  Transmission Date: 20140127
  Serious: Yes (Other)
  Sender: FDA-Public Use
  Company Number: JP-TEVA-387908ISR

PATIENT
  Sex: Male

DRUGS (1)
  1. NICARDIPINE [Suspect]
     Route: 042

REACTIONS (5)
  - Injection site inflammation [Unknown]
  - Blood pressure systolic increased [Recovered/Resolved]
  - Bone pain [Unknown]
  - Injection site erythema [Unknown]
  - Injection site swelling [Unknown]
